FAERS Safety Report 24240642 (Version 1)
Quarter: 2024Q3

REPORT INFORMATION
  Report Type: Spontaneous
  Country: JP (occurrence: JP)
  Receive Date: 20240823
  Receipt Date: 20240823
  Transmission Date: 20241016
  Serious: Yes (Other)
  Sender: STRIDES
  Company Number: JP-STRIDES ARCOLAB LIMITED-2024SP010455

PATIENT
  Age: 73 Year
  Sex: Female

DRUGS (8)
  1. METHOTREXATE [Suspect]
     Active Substance: METHOTREXATE
     Indication: Double hit lymphoma
     Dosage: UNK, CYCLICAL (RECEIVED 3 CYCLES UNDER R-MPV REGIMEN)
     Route: 065
  2. METHOTREXATE [Suspect]
     Active Substance: METHOTREXATE
     Indication: Follicular lymphoma
     Dosage: UNK, CYCLICAL (RECEIVED 3 CYCLES)
     Route: 037
  3. PROCARBAZINE [Suspect]
     Active Substance: PROCARBAZINE
     Indication: Double hit lymphoma
     Dosage: UNK, CYCLICAL (RECEIVED 3 CYCLES UNDER R-MPV REGIMEN)
     Route: 065
  4. PROCARBAZINE [Suspect]
     Active Substance: PROCARBAZINE
     Indication: Follicular lymphoma
  5. RITUXIMAB [Suspect]
     Active Substance: RITUXIMAB
     Indication: Double hit lymphoma
     Dosage: UNK, CYCLICAL (RECEIVED 3 CYCLES UNDER R-MPV REGIMEN)
     Route: 065
  6. RITUXIMAB [Suspect]
     Active Substance: RITUXIMAB
     Indication: Follicular lymphoma
  7. VINCRISTINE [Suspect]
     Active Substance: VINCRISTINE
     Indication: Double hit lymphoma
     Dosage: UNK, CYCLICAL (RECEIVED 3 CYCLES UNDER R-MPV REGIMEN)
     Route: 065
  8. VINCRISTINE [Suspect]
     Active Substance: VINCRISTINE
     Indication: Follicular lymphoma

REACTIONS (1)
  - Seizure [Recovered/Resolved]
